FAERS Safety Report 4312896-2 (Version None)
Quarter: 2004Q1

REPORT INFORMATION
  Report Type: 
  Country: None (occurrence: None)
  Receive Date: 20040303
  Receipt Date: 20040219
  Transmission Date: 20041129
  Serious: Yes (Disabling)
  Sender: FDA-Public Use
  Company Number: 2004-BP-01279PF

PATIENT
  Age: 76 Year

DRUGS (7)
  1. SPIRIVA [Suspect]
     Indication: CHRONIC OBSTRUCTIVE AIRWAYS DISEASE
     Dosage: 18 MCG (18 MCG)
  2. VERAHEXAL (VERAPAMIL HYDROCHLORIDE) (NR) [Concomitant]
  3. BRONCHORETARD (THEOPHYLLINE) (NR) [Concomitant]
  4. PREDNISOLON (PREDNISOLONE) (NR) [Concomitant]
  5. DELIX (RAMIPRIL) (NR) [Concomitant]
  6. SIMVAHEXAL (AMLODIPINE BESILATE) (NR) [Concomitant]
  7. VIANI DISKUS (SERETIDE MITE) (NR) [Concomitant]

REACTIONS (2)
  - BACK PAIN [None]
  - DRY MOUTH [None]
